FAERS Safety Report 21380512 (Version 1)
Quarter: 2022Q3

REPORT INFORMATION
  Report Type: Spontaneous
  Country: CN (occurrence: CN)
  Receive Date: 20220927
  Receipt Date: 20220927
  Transmission Date: 20221026
  Serious: Yes (Other)
  Sender: FDA-Public Use
  Company Number: CN-PFIZER INC-PV202200069169

PATIENT
  Age: 55 Year
  Sex: Female

DRUGS (3)
  1. FLUCONAZOLE [Interacting]
     Active Substance: FLUCONAZOLE
     Indication: Anti-infective therapy
     Dosage: 0.45 G, 1X/DAY
     Route: 048
     Dates: start: 20220822, end: 20220825
  2. GLIQUIDONE [Interacting]
     Active Substance: GLIQUIDONE
     Indication: Blood glucose increased
     Dosage: 60MG QD
     Route: 048
     Dates: start: 20220823
  3. GLIQUIDONE [Interacting]
     Active Substance: GLIQUIDONE
     Dosage: 60MG TID
     Route: 048
     Dates: start: 202208

REACTIONS (2)
  - Blood glucose increased [Recovering/Resolving]
  - Drug interaction [Unknown]

NARRATIVE: CASE EVENT DATE: 20220801
